FAERS Safety Report 12420137 (Version 1)
Quarter: 2016Q2

REPORT INFORMATION
  Report Type: Spontaneous
  Country: US (occurrence: US)
  Receive Date: 20160531
  Receipt Date: 20160531
  Transmission Date: 20160815
  Serious: No
  Sender: FDA-Public Use
  Company Number: US-GLAXOSMITHKLINE-US2016GSK068353

PATIENT

DRUGS (3)
  1. FLONASE [Suspect]
     Active Substance: FLUTICASONE PROPIONATE
     Indication: COUGH
     Dosage: UNK
     Dates: start: 201605
  2. FLONASE [Suspect]
     Active Substance: FLUTICASONE PROPIONATE
     Indication: CHEST DISCOMFORT
  3. FLONASE [Suspect]
     Active Substance: FLUTICASONE PROPIONATE
     Indication: PRODUCTIVE COUGH

REACTIONS (4)
  - Drug prescribing error [Unknown]
  - Ageusia [Unknown]
  - Anosmia [Unknown]
  - Off label use [Unknown]
